FAERS Safety Report 5673712-X (Version None)
Quarter: 2008Q2

REPORT INFORMATION
  Report Type: 
  Country: None (occurrence: None)
  Receive Date: 20080225
  Receipt Date: 20070905
  Transmission Date: 20081010
  Serious: Yes (Hospitalization)
  Sender: FDA-Public Use
  Company Number: WAES 0709USA00625

PATIENT
  Age: 87 Year
  Sex: Female
  Weight: 53.0709 kg

DRUGS (10)
  1. ZOCOR [Suspect]
     Indication: HYPERLIPIDAEMIA
     Dosage: 5 MG/DAILY/PO
     Route: 048
     Dates: end: 20070803
  2. ACINON [Concomitant]
  3. ASPIRIN [Concomitant]
  4. CATLEP [Concomitant]
  5. DIART [Concomitant]
  6. HERBESSER R [Concomitant]
  7. NITRODERM [Concomitant]
  8. NITROPEN [Concomitant]
  9. GLYSENNID [Concomitant]
  10. MAGNESIUM OXIDE [Concomitant]

REACTIONS (3)
  - DEHYDRATION [None]
  - RHABDOMYOLYSIS [None]
  - URINARY TRACT INFECTION [None]
